FAERS Safety Report 9638034 (Version 1)
Quarter: 2013Q4

REPORT INFORMATION
  Report Type: Spontaneous
  Country: US (occurrence: None)
  Receive Date: 20131021
  Receipt Date: 20131021
  Transmission Date: 20140711
  Serious: No
  Sender: FDA-Public Use
  Company Number: None

PATIENT
  Age: 49 Year
  Sex: Female

DRUGS (1)
  1. BUPROPION [Suspect]
     Dosage: T AM
     Route: 048
     Dates: start: 201003, end: 20130918

REACTIONS (1)
  - Rash [None]
